FAERS Safety Report 7125943-X (Version None)
Quarter: 2010Q4

REPORT INFORMATION
  Report Type: 
  Country: None (occurrence: None)
  Receive Date: 20101129
  Receipt Date: 20101123
  Transmission Date: 20110411
  Serious: Yes (Life-Threatening)
  Sender: FDA-Public Use
  Company Number: ES-JNJFOC-20090709442

PATIENT
  Age: 74 Year
  Sex: Female

DRUGS (4)
  1. DURAGESIC-100 [Suspect]
     Indication: ILL-DEFINED DISORDER
     Route: 062
  2. BROMAZEPAM [Interacting]
     Indication: ILL-DEFINED DISORDER
     Route: 048
  3. TRAMADOL HCL [Interacting]
     Indication: BACK PAIN
     Route: 048
  4. PREGABALIN [Interacting]
     Indication: BACK PAIN
     Route: 048

REACTIONS (3)
  - DRUG INTERACTION [None]
  - DYSPNOEA [None]
  - SOPOR [None]
